FAERS Safety Report 5339309-6 (Version None)
Quarter: 2007Q2

REPORT INFORMATION
  Report Type: 
  Country: None (occurrence: None)
  Receive Date: 20070525
  Receipt Date: 20070516
  Transmission Date: 20071010
  Serious: Yes (Death)
  Sender: FDA-Public Use
  Company Number: A-CH2007-14639

PATIENT
  Age: 79 Year
  Sex: Female

DRUGS (14)
  1. TRACLEER [Suspect]
     Indication: PULMONARY HYPERTENSION
     Dosage: SEE IMAGE
     Route: 048
     Dates: start: 20070307, end: 20070313
  2. TRACLEER [Suspect]
     Indication: PULMONARY HYPERTENSION
     Dosage: SEE IMAGE
     Route: 048
     Dates: end: 20070322
  3. TRACLEER [Suspect]
     Indication: PULMONARY HYPERTENSION
     Dosage: SEE IMAGE
     Route: 048
     Dates: start: 20070314
  4. OMEPRAZOLE [Concomitant]
  5. COLAZIDE (BALSALAZIDE SODIUM) [Concomitant]
  6. WARAN [Concomitant]
  7. DUROFERON (FERROUS SULFATE) [Concomitant]
  8. DIGOXIN [Concomitant]
  9. FUROSEMIDE (FUROSEMIDE SODIUM) [Concomitant]
  10. SPIRONOLACTONE [Concomitant]
  11. FELODIPINE [Concomitant]
  12. ENALAPRIL MALEATE [Concomitant]
  13. SIMVASTATIN [Concomitant]
  14. ATENOLOL [Concomitant]

REACTIONS (5)
  - CORONARY ARTERY THROMBOSIS [None]
  - LYMPHOCYTE COUNT DECREASED [None]
  - MYOCARDIAL INFARCTION [None]
  - NEUTROPHIL COUNT DECREASED [None]
  - WHITE BLOOD CELL COUNT DECREASED [None]
